FAERS Safety Report 5839153-7 (Version None)
Quarter: 2008Q3

REPORT INFORMATION
  Report Type: 
  Country: None (occurrence: None)
  Receive Date: 20080808
  Receipt Date: 20080728
  Transmission Date: 20090109
  Serious: Yes (Other)
  Sender: FDA-Public Use
  Company Number: US-PFIZER INC-2008048370

PATIENT
  Sex: Male
  Weight: 81.6 kg

DRUGS (8)
  1. NEURONTIN [Suspect]
     Indication: NEUROPATHY PERIPHERAL
     Route: 048
  2. GABAPENTIN [Suspect]
     Indication: DIABETIC NEUROPATHY
     Dosage: DAILY DOSE:1800MG
  3. GABAPENTIN [Suspect]
     Indication: NERVE INJURY
  4. GABAPENTIN [Suspect]
     Indication: PAIN
  5. LYRICA [Suspect]
     Indication: PAIN IN EXTREMITY
     Dates: start: 20070601, end: 20080101
  6. PRAVACHOL [Concomitant]
  7. ACETYLSALICYLIC ACID SRT [Concomitant]
  8. INSULIN [Concomitant]

REACTIONS (6)
  - AMNESIA [None]
  - CEREBROVASCULAR ACCIDENT [None]
  - DIZZINESS [None]
  - DRUG INEFFECTIVE [None]
  - METAL POISONING [None]
  - UNEVALUABLE EVENT [None]
